FAERS Safety Report 9580470 (Version 1)
Quarter: 2013Q3

REPORT INFORMATION
  Report Type: Spontaneous
  Country: US (occurrence: None)
  Receive Date: 20130916
  Receipt Date: 20130916
  Transmission Date: 20140515
  Serious: Yes (Other)
  Sender: FDA-Public Use
  Company Number: JPI-P-026459

PATIENT
  Age: 34 Year
  Sex: Male
  Weight: 106.6 kg

DRUGS (4)
  1. XYREM [Suspect]
     Indication: NARCOLEPSY
     Dosage: 4.5 (2.25 GM, 2 IN 1 D)
     Route: 048
     Dates: start: 20121002
  2. XYREM [Suspect]
     Indication: SOMNOLENCE
     Dosage: 4.5 (2.25 GM, 2 IN 1 D)
     Route: 048
     Dates: start: 20121002
  3. CORTISONE [Suspect]
     Indication: BACK PAIN
     Dosage: (UNKNOWN) INJECTION
  4. AMPHETAMINE, DEXTROAMPHETAMINE MIXED SALTS [Concomitant]

REACTIONS (3)
  - Hypertension [None]
  - Hot flush [None]
  - Hyperhidrosis [None]
